FAERS Safety Report 23885590 (Version 2)
Quarter: 2024Q2

REPORT INFORMATION
  Report Type: Spontaneous
  Country: GB (occurrence: GB)
  Receive Date: 20240522
  Receipt Date: 20240607
  Transmission Date: 20240716
  Serious: Yes (Life-Threatening, Hospitalization)
  Sender: FDA-Public Use
  Company Number: GB-TEVA-VS-3200248

PATIENT
  Age: 33 Year
  Sex: Female

DRUGS (7)
  1. QUETIAPINE [Suspect]
     Active Substance: QUETIAPINE
     Indication: Overdose
     Route: 065
  2. QUETIAPINE [Suspect]
     Active Substance: QUETIAPINE
     Indication: Overdose
     Dosage: SHE TOOK AN OVERDOSE OF QUETIAPINE WITH AN APPROXIMATELY TOTAL DOSE OF 2100MG
     Route: 065
  3. PREGABALIN [Concomitant]
     Active Substance: PREGABALIN
     Indication: Product used for unknown indication
     Route: 065
  4. DULOXETINE [Concomitant]
     Active Substance: DULOXETINE
     Indication: Product used for unknown indication
     Route: 065
  5. SODIUM CHLORIDE [Suspect]
     Active Substance: SODIUM CHLORIDE
     Indication: Hypotension
     Route: 065
  6. METARAMINOL [Suspect]
     Active Substance: METARAMINOL
     Indication: Hypotension
     Dosage: INFUSION OF 0.5 MG/ML WITH AN INITIAL RATE OF 5 ML/H FOLLOWED BY 20 ML/H
     Route: 065
  7. EPINEPHRINE [Suspect]
     Active Substance: EPINEPHRINE
     Indication: Cardiac arrest
     Dosage: BOLUSES OF 10 MICROGRAMS PER MILLILITER
     Route: 065

REACTIONS (4)
  - Circulatory collapse [Unknown]
  - Intentional overdose [Unknown]
  - Drug ineffective [Unknown]
  - Hypotension [Recovering/Resolving]
